FAERS Safety Report 7052458-X (Version None)
Quarter: 2010Q4

REPORT INFORMATION
  Report Type: 
  Country: None (occurrence: None)
  Receive Date: 20101019
  Receipt Date: 20101006
  Transmission Date: 20110411
  Serious: Yes (Hospitalization, Other)
  Sender: FDA-Public Use
  Company Number: IT-ELI_LILLY_AND_COMPANY-IT201010001786

PATIENT
  Age: 28 Year
  Sex: Female

DRUGS (6)
  1. PROZAC [Suspect]
     Indication: EATING DISORDER
     Dosage: 60 MG, DAILY (1/D)
     Route: 065
  2. PROZAC [Suspect]
     Dosage: 20 MG, DAILY (1/D)
     Route: 065
  3. ELETRIPTAN [Concomitant]
     Indication: MIGRAINE
     Dosage: 40 MG, DAILY (1/D)
     Route: 065
  4. AMITRIPTYLINE HCL [Concomitant]
     Indication: PROPHYLAXIS
     Dosage: UNK, UNKNOWN
     Route: 065
  5. ST. JOHN'S WORT [Concomitant]
     Dosage: UNK, UNKNOWN
     Route: 065
  6. TRIPTAN [Concomitant]
     Indication: MIGRAINE
     Dosage: UNK, UNKNOWN
     Route: 065

REACTIONS (7)
  - CONVULSION [None]
  - DRUG INTERACTION [None]
  - FIBRIN D DIMER INCREASED [None]
  - OFF LABEL USE [None]
  - RENAL FAILURE ACUTE [None]
  - RHABDOMYOLYSIS [None]
  - SEROTONIN SYNDROME [None]
